FAERS Safety Report 13527274 (Version 1)
Quarter: 2017Q2

REPORT INFORMATION
  Report Type: Spontaneous
  Country: US (occurrence: US)
  Receive Date: 20170509
  Receipt Date: 20170509
  Transmission Date: 20170830
  Serious: Yes (Hospitalization, Other)
  Sender: FDA-Public Use
  Company Number: US-TEVA-766047USA

PATIENT
  Age: 83 Year
  Sex: Male

DRUGS (1)
  1. LOPERAMIDE [Suspect]
     Active Substance: LOPERAMIDE
     Dosage: 400 MILLIGRAM DAILY;
     Route: 048

REACTIONS (4)
  - Electrocardiogram abnormal [Recovered/Resolved]
  - Intentional product misuse [Unknown]
  - Electrocardiogram QRS complex prolonged [Recovered/Resolved]
  - Electrocardiogram QT prolonged [Recovered/Resolved]
